FAERS Safety Report 8519236-3 (Version None)
Quarter: 2012Q3

REPORT INFORMATION
  Report Type: 
  Country: None (occurrence: None)
  Receive Date: 20120718
  Receipt Date: 20120711
  Transmission Date: 20120928
  Serious: Yes (Hospitalization, Other)
  Sender: FDA-Public Use
  Company Number: CA-ABBOTT-12P-028-0953214-00

PATIENT
  Sex: Male
  Weight: 81.72 kg

DRUGS (1)
  1. LUPRON DEPOT [Suspect]
     Indication: PROSTATE CANCER
     Dates: start: 20120404

REACTIONS (5)
  - METASTASIS [None]
  - SWELLING FACE [None]
  - HYPOAESTHESIA [None]
  - BONE PAIN [None]
  - BLOOD BLISTER [None]
